FAERS Safety Report 20678074 (Version 3)
Quarter: 2023Q2

REPORT INFORMATION
  Report Type: Report from Study
  Country: GB (occurrence: GB)
  Receive Date: 20220406
  Receipt Date: 20230427
  Transmission Date: 20230722
  Serious: Yes (Other)
  Sender: FDA-Public Use
  Company Number: GB-NOVARTISPH-NVSC2022GB075176

PATIENT
  Age: 44 Year
  Sex: Male

DRUGS (2)
  1. HYRIMOZ [Suspect]
     Active Substance: ADALIMUMAB-ADAZ
     Indication: Ankylosing spondylitis
     Dosage: (40/0.8 MG/ML) Q2W
     Route: 065
  2. HYRIMOZ [Suspect]
     Active Substance: ADALIMUMAB-ADAZ
     Dosage: 40 MG, Q2W (EOW)
     Route: 058

REACTIONS (5)
  - Blindness unilateral [Unknown]
  - Ankylosing spondylitis [Unknown]
  - Suicide attempt [Unknown]
  - Gait disturbance [Not Recovered/Not Resolved]
  - Product dose omission issue [Unknown]

NARRATIVE: CASE EVENT DATE: 20230401
